FAERS Safety Report 9095971 (Version 1)
Quarter: 2013Q1

REPORT INFORMATION
  Report Type: Spontaneous
  Country: US (occurrence: US)
  Receive Date: 20130207
  Receipt Date: 20130207
  Transmission Date: 20140127
  Serious: No
  Sender: FDA-Public Use
  Company Number: US-B.I. PHARMACEUTICALS,INC./RIDGEFIELD-2013-BI-03098BP

PATIENT
  Sex: Female

DRUGS (6)
  1. AGGRENOX [Suspect]
     Indication: CEREBROVASCULAR ACCIDENT PROPHYLAXIS
     Route: 048
     Dates: start: 20130113
  2. ASPIRIN [Concomitant]
     Dosage: 81 MG
     Route: 048
  3. ATENOLOL [Concomitant]
     Route: 048
  4. NORVASC [Concomitant]
     Indication: HYPERTENSION
     Route: 048
  5. WATER PILL [Concomitant]
     Route: 048
  6. ADVIL [Concomitant]
     Route: 048

REACTIONS (1)
  - Blood pressure increased [Recovered/Resolved]
